FAERS Safety Report 9748588 (Version 1)
Quarter: 2013Q4

REPORT INFORMATION
  Report Type: Spontaneous
  Country: GB (occurrence: None)
  Receive Date: 20131209
  Receipt Date: 20131209
  Transmission Date: 20140711
  Serious: No
  Sender: FDA-Public Use
  Company Number: GB2013K4886SPO

PATIENT
  Age: 55 Year
  Sex: Male
  Weight: 90.27 kg

DRUGS (5)
  1. LANSOPRAZOLE (LANSOPRAZOLE) [Suspect]
     Dates: start: 20130911, end: 20131106
  2. AMITRIPTYLINE HYDROCHLORIDE (AMITRIPTYLINE) [Concomitant]
  3. BISOPROLOL (BISOPROLOL) [Concomitant]
  4. CO-CODAMOL (CODEINE PHOSPHATE, PARACETAMOL) [Concomitant]
  5. RANITIDINE (RANITIDINE) [Concomitant]

REACTIONS (2)
  - Agitation [None]
  - Restlessness [None]
